FAERS Safety Report 11642161 (Version 1)
Quarter: 2015Q4

REPORT INFORMATION
  Report Type: Spontaneous
  Country: US (occurrence: US)
  Receive Date: 20151019
  Receipt Date: 20151019
  Transmission Date: 20160304
  Serious: No
  Sender: FDA-Public Use
  Company Number: US-009507513-1510USA003368

PATIENT
  Age: 18 Year
  Sex: Female
  Weight: 45.36 kg

DRUGS (1)
  1. NEXPLANON [Suspect]
     Active Substance: ETONOGESTREL
     Indication: CONTRACEPTION
     Dosage: UNK
     Route: 059
     Dates: start: 20150526

REACTIONS (2)
  - Muscle spasms [Unknown]
  - Menorrhagia [Unknown]

NARRATIVE: CASE EVENT DATE: 201505
